FAERS Safety Report 25710192 (Version 1)
Quarter: 2025Q3

REPORT INFORMATION
  Report Type: Spontaneous
  Country: EU (occurrence: EU)
  Receive Date: 20250821
  Receipt Date: 20250821
  Transmission Date: 20251021
  Serious: Yes (Other)
  Sender: RANBAXY
  Company Number: EU-SUN PHARMACEUTICAL INDUSTRIES LTD-2025RR-523383

PATIENT
  Age: 30 Year
  Sex: Male
  Weight: 102 kg

DRUGS (1)
  1. SERTRALINE [Suspect]
     Active Substance: SERTRALINE HYDROCHLORIDE
     Indication: Depression
     Route: 048
     Dates: start: 20130601, end: 20130629

REACTIONS (5)
  - Erectile dysfunction [Not Recovered/Not Resolved]
  - Libido decreased [Not Recovered/Not Resolved]
  - Emotional poverty [Not Recovered/Not Resolved]
  - Sexual dysfunction [Not Recovered/Not Resolved]
  - Male orgasmic disorder [Not Recovered/Not Resolved]

NARRATIVE: CASE EVENT DATE: 20130611
